FAERS Safety Report 21994405 (Version 1)
Quarter: 2023Q1

REPORT INFORMATION
  Report Type: Spontaneous
  Country: JP (occurrence: JP)
  Receive Date: 20230215
  Receipt Date: 20230215
  Transmission Date: 20230417
  Serious: Yes (Hospitalization, Other)
  Sender: FDA-Public Use
  Company Number: JP-BRISTOL-MYERS SQUIBB COMPANY-2023-015770

PATIENT
  Age: 75 Year
  Sex: Male

DRUGS (1)
  1. HYDROXYUREA [Suspect]
     Active Substance: HYDROXYUREA
     Indication: Chronic leukaemia

REACTIONS (2)
  - Spinal compression fracture [Unknown]
  - Extradural haematoma [Unknown]
